FAERS Safety Report 13574223 (Version 3)
Quarter: 2017Q2

REPORT INFORMATION
  Report Type: Report from Study
  Country: TW (occurrence: TW)
  Receive Date: 20170523
  Receipt Date: 20170602
  Transmission Date: 20170830
  Serious: Yes (Other)
  Sender: FDA-Public Use
  Company Number: TW-JNJFOC-20170518530

PATIENT
  Age: 67 Year
  Sex: Male
  Weight: 55 kg

DRUGS (1)
  1. STELARA [Suspect]
     Active Substance: USTEKINUMAB
     Indication: PSORIASIS
     Dosage: TOTAL 7 INJECTIONS RECEIVED
     Route: 058
     Dates: start: 20150904, end: 20161209

REACTIONS (6)
  - Nausea [Unknown]
  - Hepatocellular carcinoma [Unknown]
  - Cholelithiasis [Unknown]
  - Constipation [Unknown]
  - Haemangioma of liver [Unknown]
  - Renal cyst [Unknown]

NARRATIVE: CASE EVENT DATE: 20170512
